FAERS Safety Report 10855574 (Version 1)
Quarter: 2015Q1

REPORT INFORMATION
  Report Type: Spontaneous
  Country: US (occurrence: None)
  Receive Date: 20150218
  Receipt Date: 20150218
  Transmission Date: 20150721
  Serious: No
  Sender: FDA-Public Use
  Company Number: None

PATIENT
  Age: 58 Year

DRUGS (1)
  1. KETAMINE [Suspect]
     Active Substance: KETAMINE

REACTIONS (2)
  - Unevaluable event [None]
  - Therapeutic response unexpected [None]

NARRATIVE: CASE EVENT DATE: 20150115
